FAERS Safety Report 15629763 (Version 2)
Quarter: 2019Q1

REPORT INFORMATION
  Report Type: Spontaneous
  Country: US (occurrence: US)
  Receive Date: 20181117
  Receipt Date: 20190103
  Transmission Date: 20190417
  Serious: Yes (Other)
  Sender: FDA-Public Use
  Company Number: US-AMGEN-USASP2018161111

PATIENT
  Age: 58 Year
  Sex: Female
  Weight: 97.78 kg

DRUGS (1)
  1. PROLIA [Suspect]
     Active Substance: DENOSUMAB
     Indication: OSTEOPOROSIS POSTMENOPAUSAL
     Dosage: 60 MG, Q6MO
     Route: 065
     Dates: start: 20181129, end: 20181227

REACTIONS (5)
  - Hypoaesthesia oral [Not Recovered/Not Resolved]
  - Muscle tightness [Unknown]
  - Tooth infection [Unknown]
  - Pain in extremity [Unknown]
  - Osteonecrosis of jaw [Unknown]
